FAERS Safety Report 6548014-X (Version None)
Quarter: 2010Q1

REPORT INFORMATION
  Report Type: 
  Country: None (occurrence: None)
  Receive Date: 20100124
  Receipt Date: 20091203
  Transmission Date: 20100710
  Serious: No
  Sender: FDA-Public Use
  Company Number: CA-ALEXION-A200901044

PATIENT

DRUGS (5)
  1. SOLIRIS [Suspect]
     Indication: PAROXYSMAL NOCTURNAL HAEMOGLOBINURIA
     Dosage: 600 MG, QWK
     Route: 042
     Dates: start: 20091202
  2. WARFARIN [Concomitant]
     Dosage: 7 MG, QD
     Route: 048
  3. CELEXA [Concomitant]
     Indication: DEPRESSION
     Dosage: 5 MG, QD
     Route: 048
  4. FOLIC ACID [Concomitant]
     Indication: PAROXYSMAL NOCTURNAL HAEMOGLOBINURIA
     Dosage: 5 MG, QD
     Route: 048
  5. IRON [Concomitant]
     Dosage: UNK
     Route: 048

REACTIONS (6)
  - BACK PAIN [None]
  - FEELING COLD [None]
  - HEADACHE [None]
  - MUSCULOSKELETAL PAIN [None]
  - NAUSEA [None]
  - URINE COLOUR ABNORMAL [None]
